FAERS Safety Report 18274196 (Version 2)
Quarter: 2020Q4

REPORT INFORMATION
  Report Type: Report from Study
  Country: CA (occurrence: CA)
  Receive Date: 20200916
  Receipt Date: 20201001
  Transmission Date: 20210113
  Serious: Yes (Other)
  Sender: FDA-Public Use
  Company Number: CA-BRISTOL-MYERS SQUIBB COMPANY-BMS-2020-073430

PATIENT
  Age: 70 Year
  Sex: Female

DRUGS (1)
  1. ABATACEPT [Suspect]
     Active Substance: ABATACEPT
     Indication: RHEUMATOID ARTHRITIS
     Dosage: 750 MILLIGRAM, Q4WK
     Route: 042
     Dates: start: 20160225

REACTIONS (7)
  - Rhinorrhoea [Unknown]
  - Haematochezia [Unknown]
  - Diarrhoea [Unknown]
  - Malaise [Unknown]
  - Nausea [Unknown]
  - Haemorrhoids [Unknown]
  - Chest discomfort [Unknown]

NARRATIVE: CASE EVENT DATE: 20200904
